FAERS Safety Report 9894197 (Version 2)
Quarter: 2014Q1

REPORT INFORMATION
  Report Type: Report from Study
  Country: RU (occurrence: RU)
  Receive Date: 20140213
  Receipt Date: 20140213
  Transmission Date: 20141002
  Serious: Yes (Hospitalization)
  Sender: FDA-Public Use
  Company Number: RU-B.I. PHARMACEUTICALS,INC./RIDGEFIELD-2013-BI-43940BI

PATIENT
  Age: 50 Year
  Sex: Male
  Weight: 93 kg

DRUGS (4)
  1. BIBW 2992 [Suspect]
     Indication: SQUAMOUS CELL CARCINOMA OF HEAD AND NECK
     Dosage: 40 MG
     Route: 048
     Dates: start: 20131105, end: 20131213
  2. RADIOTHERAPY [Suspect]
     Indication: PRODUCT USED FOR UNKNOWN INDICATION
     Dates: start: 20130424, end: 20130619
  3. CISPLATIN [Suspect]
     Indication: PRODUCT USED FOR UNKNOWN INDICATION
     Dates: start: 20130421, end: 20130428
  4. CISPLATIN [Suspect]
     Dates: start: 20130429, end: 20130529

REACTIONS (1)
  - Respiratory failure [Recovered/Resolved]
